FAERS Safety Report 18037422 (Version 1)
Quarter: 2020Q3

REPORT INFORMATION
  Report Type: Spontaneous
  Country: TH (occurrence: TH)
  Receive Date: 20200717
  Receipt Date: 20200717
  Transmission Date: 20201103
  Serious: Yes (Hospitalization)
  Sender: FDA-Public Use
  Company Number: TH-JNJFOC-20200712816

PATIENT
  Age: 55 Year
  Sex: Female

DRUGS (2)
  1. REMICADE [Suspect]
     Active Substance: INFLIXIMAB
     Indication: PSORIASIS
     Route: 042
     Dates: start: 202005
  2. REMICADE [Suspect]
     Active Substance: INFLIXIMAB
     Dosage: SECOND WEEK
     Route: 042
     Dates: start: 2020

REACTIONS (4)
  - Infusion related reaction [Recovered/Resolved]
  - Sepsis [Unknown]
  - Pulmonary oedema [Unknown]
  - Chest discomfort [Recovered/Resolved]

NARRATIVE: CASE EVENT DATE: 2020
